FAERS Safety Report 19299527 (Version 1)
Quarter: 2021Q2

REPORT INFORMATION
  Report Type: Spontaneous
  Country: PL (occurrence: PL)
  Receive Date: 20210524
  Receipt Date: 20210524
  Transmission Date: 20210717
  Serious: Yes (Other)
  Sender: FDA-Public Use
  Company Number: PL-BAUSCH-BL-2021-013135

PATIENT
  Age: 71 Year
  Sex: Female

DRUGS (1)
  1. VIZIDOR DUO [Suspect]
     Active Substance: DORZOLAMIDE HYDROCHLORIDE\TIMOLOL MALEATE
     Indication: GLAUCOMA
     Dosage: 5/20MG/ML; OCULAR USE; TWICE A DAY IN BOTH EYES
     Route: 047
     Dates: start: 20200828, end: 20210120

REACTIONS (3)
  - Ocular hyperaemia [Recovered/Resolved]
  - Eye irritation [Recovered/Resolved]
  - Keratitis viral [Recovered/Resolved]

NARRATIVE: CASE EVENT DATE: 20200828
